FAERS Safety Report 5887299-X (Version None)
Quarter: 2008Q3

REPORT INFORMATION
  Report Type: 
  Country: None (occurrence: None)
  Receive Date: 20080915
  Receipt Date: 20080829
  Transmission Date: 20090109
  Serious: Yes (Hospitalization)
  Sender: FDA-Public Use
  Company Number: 2008AL010213

PATIENT
  Age: 77 Year
  Sex: Female
  Weight: 108.8633 kg

DRUGS (6)
  1. DIGOXIN [Suspect]
     Indication: PALPITATIONS
     Dosage: 0.25MG, DAILY, PO
     Route: 048
     Dates: start: 20080401
  2. INDERAL [Concomitant]
  3. PROPRANOLOL [Concomitant]
  4. WARFARIN SODIUM [Concomitant]
  5. TRIAMTRENE [Concomitant]
  6. JANUVIA [Concomitant]

REACTIONS (5)
  - ASTHENIA [None]
  - CARDIOACTIVE DRUG LEVEL INCREASED [None]
  - DIZZINESS [None]
  - NAUSEA [None]
  - WEIGHT DECREASED [None]
